FAERS Safety Report 9542236 (Version 1)
Quarter: 2013Q3

REPORT INFORMATION
  Report Type: Spontaneous
  Country: JP (occurrence: JP)
  Receive Date: 20130923
  Receipt Date: 20130923
  Transmission Date: 20140515
  Serious: Yes (Hospitalization, Other)
  Sender: FDA-Public Use
  Company Number: JP-SANOFI-AVENTIS-2013SA092662

PATIENT
  Sex: Female

DRUGS (1)
  1. DDAVP [Suspect]
     Indication: DIABETES INSIPIDUS
     Route: 065

REACTIONS (4)
  - Dementia [Unknown]
  - Blood sodium decreased [Unknown]
  - Pollakiuria [Unknown]
  - Nausea [Unknown]
